FAERS Safety Report 10570604 (Version 1)
Quarter: 2014Q4

REPORT INFORMATION
  Report Type: Spontaneous
  Country: DK (occurrence: GB)
  Receive Date: 20141107
  Receipt Date: 20141107
  Transmission Date: 20150529
  Serious: Yes (Other)
  Sender: FDA-Public Use
  Company Number: GB-FRI-1000072081

PATIENT
  Sex: Male

DRUGS (4)
  1. PROPRANOLOL [Suspect]
     Active Substance: PROPRANOLOL\PROPRANOLOL HYDROCHLORIDE
  2. CITALOPRAM [Suspect]
     Active Substance: CITALOPRAM HYDROBROMIDE
     Route: 048
  3. TRAZODONE HYDROCHLORIDE. [Suspect]
     Active Substance: TRAZODONE HYDROCHLORIDE
  4. SERTRALINE [Suspect]
     Active Substance: SERTRALINE HYDROCHLORIDE

REACTIONS (12)
  - Anxiety [Unknown]
  - Hearing impaired [Unknown]
  - Memory impairment [Unknown]
  - Malaise [Unknown]
  - Eye disorder [Unknown]
  - Drug ineffective [Unknown]
  - Asperger^s disorder [Unknown]
  - Cognitive disorder [Unknown]
  - Depression [Unknown]
  - Disorientation [Unknown]
  - Insomnia [Unknown]
  - Somnolence [Unknown]
